FAERS Safety Report 4825708-5 (Version None)
Quarter: 2005Q4

REPORT INFORMATION
  Report Type: 
  Country: None (occurrence: None)
  Receive Date: 20051109
  Receipt Date: 20051103
  Transmission Date: 20060501
  Serious: Yes (Disabling, Other)
  Sender: FDA-Public Use
  Company Number: 2005135488

PATIENT
  Age: 36 Year
  Sex: Male
  Weight: 117.9352 kg

DRUGS (4)
  1. VISTARIL [Suspect]
     Indication: ILL-DEFINED DISORDER
     Dosage: 50 MG (50 MG, 1 IN 1 D), CAPS
  2. HYDROXYZINE PAMOATE [Suspect]
     Indication: ILL-DEFINED DISORDER
     Dosage: CAPS
  3. MINOXIDIL [Concomitant]
  4. ATENOLOL [Concomitant]

REACTIONS (9)
  - ABDOMINAL DISTENSION [None]
  - CIRCULATORY COLLAPSE [None]
  - DIALYSIS [None]
  - MEMORY IMPAIRMENT [None]
  - RENAL FAILURE CHRONIC [None]
  - RENAL TRANSPLANT [None]
  - THERAPY NON-RESPONDER [None]
  - VASCULAR ACCESS COMPLICATION [None]
  - VASCULAR GRAFT OCCLUSION [None]
